FAERS Safety Report 12492829 (Version 1)
Quarter: 2016Q2

REPORT INFORMATION
  Report Type: Spontaneous
  Country: US (occurrence: US)
  Receive Date: 20160623
  Receipt Date: 20160623
  Transmission Date: 20160815
  Serious: No
  Sender: FDA-Public Use
  Company Number: US-PFIZER INC-2016288076

PATIENT
  Sex: Female

DRUGS (1)
  1. IBRANCE [Suspect]
     Active Substance: PALBOCICLIB
     Dosage: 125 MG
     Dates: start: 2016

REACTIONS (10)
  - Muscular weakness [Unknown]
  - Dizziness [Unknown]
  - Bone pain [Unknown]
  - Nausea [Unknown]
  - Neck pain [Unknown]
  - Urticaria [Unknown]
  - Balance disorder [Unknown]
  - Somnolence [Unknown]
  - Dyspnoea [Unknown]
  - Diarrhoea [Unknown]

NARRATIVE: CASE EVENT DATE: 2016
